FAERS Safety Report 5238923-6 (Version None)
Quarter: 2007Q1

REPORT INFORMATION
  Report Type: 
  Country: None (occurrence: None)
  Receive Date: 20070215
  Receipt Date: 20070206
  Transmission Date: 20070707
  Serious: Yes (Other)
  Sender: FDA-Public Use
  Company Number: JP-MERCK-0702USA01293

PATIENT
  Age: 39 Year
  Sex: Male

DRUGS (5)
  1. PROPECIA [Suspect]
     Indication: MALE PATTERN BALDNESS
     Route: 048
     Dates: start: 20060907, end: 20061228
  2. BEZATOL SR [Concomitant]
     Indication: HYPERLIPIDAEMIA
     Route: 048
     Dates: end: 20061127
  3. BEZATOL SR [Concomitant]
     Route: 048
     Dates: start: 20061228
  4. PARIET [Concomitant]
     Indication: DYSPEPSIA
     Route: 048
  5. ZYLORIC [Concomitant]
     Indication: HYPERURICAEMIA
     Route: 048

REACTIONS (1)
  - HYPERLIPIDAEMIA [None]
